FAERS Safety Report 22628722 (Version 1)
Quarter: 2023Q2

REPORT INFORMATION
  Report Type: Spontaneous
  Country: US (occurrence: US)
  Receive Date: 20230622
  Receipt Date: 20230622
  Transmission Date: 20230721
  Serious: No
  Sender: FDA-Public Use
  Company Number: US-PFIZER INC-202300223294

PATIENT
  Age: 8 Year
  Sex: Female
  Weight: 23.59 kg

DRUGS (2)
  1. GENOTROPIN [Suspect]
     Active Substance: SOMATROPIN
     Indication: Body height abnormal
     Dosage: 1 MG, CYCLIC (1MG 6 TIMES A WEEK AND ONE DAY OFF)
     Dates: start: 20230303
  2. GENOTROPIN [Suspect]
     Active Substance: SOMATROPIN
     Indication: Weight abnormal
     Dosage: 1.2 MG
     Dates: start: 20230614

REACTIONS (1)
  - Wrong technique in device usage process [Not Recovered/Not Resolved]

NARRATIVE: CASE EVENT DATE: 20230303
